FAERS Safety Report 7836390-7 (Version None)
Quarter: 2011Q4

REPORT INFORMATION
  Report Type: 
  Country: None (occurrence: None)
  Receive Date: 20111024
  Receipt Date: 20110626
  Transmission Date: 20120403
  Serious: No
  Sender: FDA-Public Use
  Company Number: US-BAYER-2011-059829

PATIENT
  Sex: Female
  Weight: 63 kg

DRUGS (1)
  1. ALEVE (CAPLET) [Suspect]
     Dosage: 2 TAB
     Route: 048
     Dates: start: 20100101

REACTIONS (1)
  - THERAPEUTIC RESPONSE DELAYED [None]
